FAERS Safety Report 10728286 (Version 2)
Quarter: 2015Q2

REPORT INFORMATION
  Report Type: Spontaneous
  Country: IL (occurrence: IL)
  Receive Date: 20150121
  Receipt Date: 20150625
  Transmission Date: 20150821
  Serious: Yes (Other)
  Sender: FDA-Public Use
  Company Number: IL-ROCHE-1503925

PATIENT
  Age: 40 Year
  Sex: Female

DRUGS (7)
  1. AVASTIN [Suspect]
     Active Substance: BEVACIZUMAB
     Indication: BREAST CANCER METASTATIC
     Route: 065
     Dates: start: 200901
  2. XELODA [Suspect]
     Active Substance: CAPECITABINE
     Indication: BREAST CANCER
     Route: 065
     Dates: start: 2004
  3. TAXOL [Concomitant]
     Active Substance: PACLITAXEL
     Indication: BREAST CANCER METASTATIC
     Route: 065
     Dates: start: 200901
  4. TAXOTERE [Concomitant]
     Active Substance: DOCETAXEL
     Route: 065
     Dates: start: 2004
  5. TAMOXIFEN [Concomitant]
     Active Substance: TAMOXIFEN
     Indication: BREAST CANCER METASTATIC
     Route: 065
     Dates: start: 200803
  6. FEMARA [Concomitant]
     Active Substance: LETROZOLE
     Indication: BREAST CANCER METASTATIC
     Route: 065
     Dates: start: 200805
  7. LUCRIN [Concomitant]
     Active Substance: LEUPROLIDE ACETATE
     Indication: BREAST CANCER METASTATIC
     Route: 065
     Dates: start: 200803

REACTIONS (3)
  - Liposarcoma [Unknown]
  - Proteinuria [Unknown]
  - Hypertension [Unknown]

NARRATIVE: CASE EVENT DATE: 2006
